FAERS Safety Report 5097011-2 (Version None)
Quarter: 2006Q3

REPORT INFORMATION
  Report Type: 
  Country: None (occurrence: None)
  Receive Date: 20060831
  Receipt Date: 20060808
  Transmission Date: 20061208
  Serious: Yes (Other)
  Sender: FDA-Public Use
  Company Number: CHPA2006US08000

PATIENT
  Age: 59 Year
  Sex: Female
  Weight: 77.1 kg

DRUGS (2)
  1. TRANSDERM SCOP (NCH) (HYOSCINE HYDROMIDE) TRANS-THERAPEUTIC-SYSTEM [Suspect]
     Indication: MOTION SICKNESS
     Dosage: 1.5 MG, Q72H, TRANSDERMAL
     Route: 062
     Dates: start: 20060729
  2. ATACAND [Concomitant]

REACTIONS (8)
  - ANOREXIA [None]
  - BALANCE DISORDER [None]
  - EYE HAEMORRHAGE [None]
  - HEADACHE [None]
  - HYPERSOMNIA [None]
  - NAUSEA [None]
  - PRURITUS [None]
  - VISION BLURRED [None]
